FAERS Safety Report 4654335-8 (Version None)
Quarter: 2005Q2

REPORT INFORMATION
  Report Type: 
  Country: None (occurrence: None)
  Receive Date: 20050404
  Receipt Date: 20041122
  Transmission Date: 20051028
  Serious: No
  Sender: FDA-Public Use
  Company Number: USA040979052

PATIENT
  Age: 38 Year
  Sex: Female

DRUGS (4)
  1. CYMBALTA [Suspect]
     Indication: DEPRESSION
     Dosage: 30 MG DAY
     Dates: start: 20040921, end: 20040922
  2. CYMBALTA [Suspect]
     Indication: DISEASE RECURRENCE
     Dosage: 30 MG DAY
     Dates: start: 20040921, end: 20040922
  3. CLONAZEPAM [Concomitant]
  4. WELLBUTRIN SR [Concomitant]

REACTIONS (2)
  - FACIAL PALSY [None]
  - HEADACHE [None]
